FAERS Safety Report 7339856-1 (Version None)
Quarter: 2011Q1

REPORT INFORMATION
  Report Type: 
  Country: None (occurrence: None)
  Receive Date: 20110309
  Receipt Date: 20110223
  Transmission Date: 20110831
  Serious: Yes (Hospitalization, Other)
  Sender: FDA-Public Use
  Company Number: SE-CELGENEUS-150-C5013-10070021

PATIENT
  Sex: Female
  Weight: 99 kg

DRUGS (19)
  1. DALTEPARINATRIUM [Concomitant]
     Indication: THROMBOSIS PROPHYLAXIS
     Dosage: 5000 IU (INTERNATIONAL UNIT)
     Route: 058
     Dates: start: 20100331
  2. CC-5013 [Suspect]
     Dosage: 25 MILLIGRAM
     Route: 048
     Dates: start: 20100331
  3. LOSARTAN/HYDROCHLOORTHIAZIDE [Concomitant]
     Indication: HYPERTENSION
     Dosage: 50/12.5MG
     Route: 048
     Dates: start: 20020101
  4. FUROSEMIDE [Concomitant]
     Route: 051
     Dates: start: 20100414, end: 20100622
  5. RETACRIT [Concomitant]
     Dosage: 2857.1429 IU (INTERNATIONAL UNIT)
     Route: 058
     Dates: start: 20100622
  6. CC-5013 [Suspect]
     Indication: MULTIPLE MYELOMA
     Dosage: 25 MILLIGRAM
     Route: 048
     Dates: start: 20100706, end: 20100714
  7. OMEPRAZOLE [Concomitant]
     Indication: GASTRITIS PROPHYLAXIS
     Dosage: 20 MILLIGRAM
     Route: 048
     Dates: start: 20100428, end: 20100706
  8. RINGER ACETATE [Concomitant]
     Indication: DEHYDRATION
     Route: 051
     Dates: start: 20100625, end: 20100625
  9. RINGER ACETATE [Concomitant]
     Dosage: 500 MILLILITER
     Route: 051
     Dates: start: 20100626, end: 20100626
  10. DALACIN [Concomitant]
     Indication: INFECTION
     Dosage: 900 MILLIGRAM
     Route: 048
     Dates: start: 20100629
  11. CC-5013 [Suspect]
     Dosage: 25 MILLIGRAM
     Route: 048
     Dates: start: 20100526, end: 20100622
  12. DEXAMETHASONE [Suspect]
     Dosage: 20 MILLIGRAM
     Route: 065
     Dates: start: 20100331
  13. FUROSEMIDE [Concomitant]
     Dosage: 80 MILLIGRAM
     Route: 048
     Dates: start: 20100305, end: 20100630
  14. CALCIUM CARBONATE W/COLECALCIFEROL [Concomitant]
     Dosage: 500/400 IU
     Route: 048
     Dates: start: 20100414
  15. ESTRADIOL [Concomitant]
     Indication: MENOPAUSE
     Dosage: 25 MICROGRAM
     Route: 067
     Dates: start: 20090924
  16. PENTACARINAT [Concomitant]
     Indication: PROPHYLAXIS
     Dosage: 10 MILLIGRAM
     Dates: start: 20100428, end: 20100705
  17. DEXAMETHASONE [Suspect]
     Indication: MULTIPLE MYELOMA
     Dosage: 20 MILLIGRAM
     Route: 065
     Dates: start: 20100526, end: 20100622
  18. FUROSEMIDE [Concomitant]
     Indication: HYPERTENSION
     Dosage: 20 MILLIGRAM
     Route: 051
     Dates: start: 20100412, end: 20100412
  19. PARACETAMOL [Concomitant]
     Indication: PAIN
     Dosage: 1000 MILLIGRAM
     Route: 048
     Dates: start: 20100331

REACTIONS (3)
  - SOFT TISSUE INFECTION [None]
  - RENAL FAILURE [None]
  - GENERAL PHYSICAL HEALTH DETERIORATION [None]
